FAERS Safety Report 13013973 (Version 1)
Quarter: 2016Q4

REPORT INFORMATION
  Report Type: Report from Study
  Country: US (occurrence: US)
  Receive Date: 20161209
  Receipt Date: 20161209
  Transmission Date: 20170207
  Serious: Yes (Other)
  Sender: FDA-Public Use
  Company Number: US-PURDUE-USA-2016-0135180

PATIENT
  Sex: Female

DRUGS (1)
  1. OXYCODONE HYDROCHLORIDE. [Suspect]
     Active Substance: OXYCODONE HYDROCHLORIDE
     Indication: PRODUCT USED FOR UNKNOWN INDICATION
     Dosage: 60 MG, TID
     Route: 048
     Dates: start: 2001

REACTIONS (9)
  - Logorrhoea [Unknown]
  - Ovarian cancer [Unknown]
  - Breast cancer [Unknown]
  - Memory impairment [Unknown]
  - Unevaluable event [Unknown]
  - Off label use [Not Recovered/Not Resolved]
  - Visual acuity reduced [Unknown]
  - Uterine cancer [Unknown]
  - Insomnia [Unknown]

NARRATIVE: CASE EVENT DATE: 2001
